FAERS Safety Report 6733432-7 (Version None)
Quarter: 2010Q2

REPORT INFORMATION
  Report Type: 
  Country: None (occurrence: None)
  Receive Date: 20100520
  Receipt Date: 20100510
  Transmission Date: 20101027
  Serious: Yes (Hospitalization)
  Sender: FDA-Public Use
  Company Number: US-TYCO HEALTHCARE/MALLINCKRODT-T201001224

PATIENT
  Age: 36 Year

DRUGS (14)
  1. NALTREXONE HYDROCHLORIDE [Suspect]
     Indication: DRUG DETOXIFICATION
     Dosage: 50 MG, SINGLE VIA NASOGASTRIC TUBE
  2. SODIUM CITRATE [Suspect]
     Indication: PREMEDICATION
     Dosage: 30 ML
     Route: 048
  3. RANITIDINE [Suspect]
     Indication: PREMEDICATION
     Dosage: 150 MG
     Route: 048
  4. CLONIDINE [Suspect]
     Indication: PREMEDICATION
     Dosage: 0.3 MG
     Route: 048
  5. HEPARIN SODIUM [Suspect]
     Indication: PREMEDICATION
     Dosage: 5000 U
     Route: 058
  6. MIDAZOLAM HCL [Suspect]
     Indication: ANAESTHESIA
     Dosage: 1-3 MG DURING INDUCTION
     Route: 042
  7. MIDAZOLAM HCL [Suspect]
     Dosage: 1-2 MG 1-2 HOURS PRN
  8. PROPOFOL [Suspect]
     Indication: ANAESTHESIA
     Dosage: 2-3 MG/KG AT INDUCTION
     Route: 042
  9. PROPOFOL [Suspect]
     Dosage: 25-150 UG/KG/MIN FOR MAINTENANCE
  10. LIDOCAINE [Suspect]
     Indication: ANAESTHESIA
     Dosage: 1 MG/KG
     Route: 042
  11. TUBOCURARINE CHLORIDE [Suspect]
     Indication: ANAESTHESIA
     Dosage: 3 MG
     Route: 042
  12. SUCCINYL CHOLINE [Suspect]
     Indication: ANAESTHESIA
     Dosage: 1.5 MG/KG
     Route: 042
  13. OCTREOTIDE ACETATE [Suspect]
     Indication: PROPHYLAXIS AGAINST DIARRHOEA
     Dosage: 100-150 UG OVER 30 MIN PRIOR TO NALMEFENE
     Route: 042
  14. NALMEFENE HYDROCHLORIDE [Suspect]
     Indication: DRUG DETOXIFICATION
     Dosage: 4 MG IV OVER 30 MINUTES
     Route: 042

REACTIONS (2)
  - BIPOLAR I DISORDER [None]
  - SUICIDAL IDEATION [None]
